FAERS Safety Report 20518036 (Version 1)
Quarter: 2022Q1

REPORT INFORMATION
  Report Type: Spontaneous
  Country: US (occurrence: None)
  Receive Date: 20220225
  Receipt Date: 20220225
  Transmission Date: 20220423
  Serious: Yes (Hospitalization)
  Sender: FDA-Public Use
  Company Number: US-Unichem Pharmaceuticals (USA) Inc-UCM202202-000153

PATIENT
  Age: 26 Year
  Sex: Male

DRUGS (3)
  1. AMLODIPINE [Suspect]
     Active Substance: AMLODIPINE BESYLATE
     Indication: Overdose
     Dosage: UNKNOWN
  2. BUPROPION [Suspect]
     Active Substance: BUPROPION
     Indication: Overdose
     Dosage: 27 GRAMS
  3. PROPRANOLOL [Suspect]
     Active Substance: PROPRANOLOL HYDROCHLORIDE
     Indication: Overdose
     Dosage: UNKNOWN

REACTIONS (6)
  - Encephalopathy [Recovering/Resolving]
  - Seizure [Recovering/Resolving]
  - Bradycardia [Recovering/Resolving]
  - Somnolence [Recovering/Resolving]
  - Hypotension [Recovering/Resolving]
  - Overdose [Unknown]
